FAERS Safety Report 9049904 (Version 2)
Quarter: 2013Q1

REPORT INFORMATION
  Report Type: Spontaneous
  Country: PT (occurrence: PT)
  Receive Date: 20130205
  Receipt Date: 20130313
  Transmission Date: 20140127
  Serious: Yes (Other)
  Sender: FDA-Public Use
  Company Number: PT-ROCHE-1187820

PATIENT
  Age: 37 Year
  Sex: Female
  Weight: 43 kg

DRUGS (5)
  1. PEGASYS [Suspect]
     Indication: HEPATITIS C
     Route: 058
     Dates: start: 20120909, end: 20120924
  2. ARGININE ASPARTATE [Concomitant]
     Route: 048
     Dates: start: 20120308
  3. FOLIC ACID [Concomitant]
     Route: 048
     Dates: start: 20120308
  4. IRON [Concomitant]
     Route: 048
  5. CIPROFLOXACIN [Concomitant]
     Route: 048
     Dates: start: 20120821, end: 20120831

REACTIONS (1)
  - Optic neuritis [Recovered/Resolved]
